FAERS Safety Report 8785696 (Version 3)
Quarter: 2012Q4

REPORT INFORMATION
  Report Type: 
  Country: FR (occurrence: FR)
  Receive Date: 20120914
  Receipt Date: 20121203
  Transmission Date: 20130627
  Serious: Yes (Life-Threatening, Hospitalization)
  Sender: FDA-Public Use
  Company Number: FR-GILEAD-2012-0061066

PATIENT
  Age: 54 Year
  Sex: Female

DRUGS (3)
  1. TRUVADA [Suspect]
     Indication: HIV INFECTION
     Dosage: UNK
     Dates: start: 201202, end: 20120817
  2. PREZISTA [Concomitant]
     Indication: HIV INFECTION
     Dosage: UNK
     Dates: start: 201202, end: 201210
  3. RITONAVIR [Concomitant]
     Indication: HIV INFECTION
     Dosage: UNK
     Dates: start: 201202, end: 201210

REACTIONS (1)
  - Fanconi syndrome acquired [Recovering/Resolving]
